FAERS Safety Report 10242029 (Version 1)
Quarter: 2014Q2

REPORT INFORMATION
  Report Type: Spontaneous
  Country: US (occurrence: None)
  Receive Date: 20140613
  Receipt Date: 20140613
  Transmission Date: 20141212
  Serious: Yes (Hospitalization)
  Sender: FDA-Public Use
  Company Number: SYM-2014-21948

PATIENT
  Sex: Male

DRUGS (1)
  1. WELLBUTRIN (BUPROPION HYDROCHLORIDE) (TABLET) (BUPROPION  HYDROCHLORIDE) [Suspect]
     Indication: SMOKING CESSATION THERAPY
     Route: 048

REACTIONS (9)
  - Drug withdrawal syndrome [None]
  - Influenza [None]
  - Hyperhidrosis [None]
  - Dehydration [None]
  - Drug ineffective [None]
  - Dysstasia [None]
  - Abasia [None]
  - Rash [None]
  - Photopsia [None]
